FAERS Safety Report 14346124 (Version 1)
Quarter: 2018Q1

REPORT INFORMATION
  Report Type: Spontaneous
  Country: NL (occurrence: NL)
  Receive Date: 20180103
  Receipt Date: 20180103
  Transmission Date: 20180509
  Serious: Yes (Other)
  Sender: FDA-Public Use
  Company Number: NL-BAXTER-2017BAX044919

PATIENT
  Age: 46 Year
  Sex: Female
  Weight: 86 kg

DRUGS (1)
  1. METRONIDAZOL 5 MG/ML IN VIAFLO, OPLOSSING VOOR INTRAVEINEUZE INFUSIE [Suspect]
     Active Substance: METRONIDAZOLE
     Indication: PRODUCT USED FOR UNKNOWN INDICATION
     Route: 065
     Dates: start: 20171123

REACTIONS (4)
  - Chromaturia [Not Recovered/Not Resolved]
  - Dizziness [Not Recovered/Not Resolved]
  - Haematochezia [Recovering/Resolving]
  - Somnolence [Not Recovered/Not Resolved]

NARRATIVE: CASE EVENT DATE: 20171125
